FAERS Safety Report 5194684-0 (Version None)
Quarter: 2006Q4

REPORT INFORMATION
  Report Type: 
  Country: None (occurrence: None)
  Receive Date: 20061229
  Receipt Date: 20061220
  Transmission Date: 20070319
  Serious: Yes (Life-Threatening)
  Sender: FDA-Public Use
  Company Number: JP-JNJFOC-20061202747

PATIENT
  Sex: Male

DRUGS (2)
  1. LEVOFLOXACIN [Suspect]
     Indication: CYSTITIS
     Route: 048
     Dates: start: 20060913, end: 20060922
  2. UNKNOWN MEDICATION [Concomitant]
     Indication: PARKINSON'S DISEASE
     Route: 065

REACTIONS (1)
  - INTERSTITIAL LUNG DISEASE [None]
